FAERS Safety Report 8863196 (Version 1)
Quarter: 2012Q4

REPORT INFORMATION
  Report Type: 
  Country: US (occurrence: US)
  Receive Date: 20121025
  Receipt Date: 20121025
  Transmission Date: 20130627
  Serious: No
  Sender: FDA-Public Use
  Company Number: US-VERTEX PHARMACEUTICAL INC.-2012-023405

PATIENT
  Age: 32 Year
  Sex: Female
  Weight: 70 kg

DRUGS (4)
  1. VX-950 [Suspect]
     Indication: HEPATITIS C
     Dosage: 750 mg, tid
     Route: 048
  2. RIBASPHERE [Concomitant]
     Indication: HEPATITIS C
     Dosage: 200 mg, UNK
  3. PEGASYS [Concomitant]
     Indication: HEPATITIS C
  4. ZOFRAN                             /00955301/ [Concomitant]
     Dosage: 4 mg, UNK

REACTIONS (7)
  - White blood cell count decreased [Unknown]
  - Dizziness [Unknown]
  - Influenza like illness [Recovered/Resolved]
  - Myalgia [Recovered/Resolved]
  - Irritability [Unknown]
  - Fatigue [Unknown]
  - Platelet count decreased [Unknown]
